FAERS Safety Report 13821742 (Version 1)
Quarter: 2017Q3

REPORT INFORMATION
  Report Type: Spontaneous
  Country: US (occurrence: US)
  Receive Date: 20170801
  Receipt Date: 20170801
  Transmission Date: 20171127
  Serious: No
  Sender: FDA-Public Use
  Company Number: US-BIOGEN-2017BI00439276

PATIENT
  Age: 46 Year
  Sex: Male

DRUGS (1)
  1. TYSABRI [Suspect]
     Active Substance: NATALIZUMAB
     Indication: MULTIPLE SCLEROSIS
     Route: 065
     Dates: start: 20170621

REACTIONS (5)
  - Visual impairment [Unknown]
  - Balance disorder [Unknown]
  - Diarrhoea [Unknown]
  - Asthenia [Unknown]
  - Mental impairment [Unknown]

NARRATIVE: CASE EVENT DATE: 201706
